FAERS Safety Report 7602209-2 (Version None)
Quarter: 2011Q3

REPORT INFORMATION
  Report Type: 
  Country: None (occurrence: None)
  Receive Date: 20110711
  Receipt Date: 20110630
  Transmission Date: 20111222
  Serious: Yes (Other)
  Sender: FDA-Public Use
  Company Number: JP-ASTRAZENECA-2011SE37509

PATIENT
  Age: 75 Year
  Sex: Female
  Weight: 46.7 kg

DRUGS (5)
  1. TIAPRIDE HYDROCHLORIDE [Concomitant]
     Indication: DELIRIUM
     Route: 048
     Dates: start: 20110610, end: 20110612
  2. TIAPRIDE HYDROCHLORIDE [Concomitant]
     Indication: PSYCHIATRIC SYMPTOM
     Route: 048
     Dates: start: 20110610, end: 20110612
  3. ASMOT AMEL [Concomitant]
     Route: 048
  4. SEROQUEL [Suspect]
     Indication: DELIRIUM
     Route: 048
     Dates: start: 20110610, end: 20110612
  5. SEROQUEL [Suspect]
     Indication: PSYCHIATRIC SYMPTOM
     Route: 048
     Dates: start: 20110610, end: 20110612

REACTIONS (2)
  - NEUROLEPTIC MALIGNANT SYNDROME [None]
  - OFF LABEL USE [None]
